FAERS Safety Report 18903444 (Version 1)
Quarter: 2021Q1

REPORT INFORMATION
  Report Type: Spontaneous
  Country: US (occurrence: US)
  Receive Date: 20210216
  Receipt Date: 20210216
  Transmission Date: 20210420
  Serious: No
  Sender: FDA-Public Use
  Company Number: None

PATIENT
  Age: 9 Year
  Sex: Male

DRUGS (6)
  1. DAILY MULTI [Concomitant]
  2. STRATTERA [Concomitant]
     Active Substance: ATOMOXETINE HYDROCHLORIDE
  3. CLONIDINE. [Concomitant]
     Active Substance: CLONIDINE
  4. VITAMIN C [Concomitant]
     Active Substance: ASCORBIC ACID
  5. MONTELUKAST [Suspect]
     Active Substance: MONTELUKAST SODIUM
     Indication: ASTHMA
     Dosage: ?          QUANTITY:1 TABLET(S);?
     Route: 048
     Dates: end: 20210212
  6. PROBIOTICS [Concomitant]
     Active Substance: PROBIOTICS NOS

REACTIONS (6)
  - Screaming [None]
  - Fall [None]
  - Confusional state [None]
  - Aggression [None]
  - Hallucination [None]
  - Injury [None]

NARRATIVE: CASE EVENT DATE: 20210212
